FAERS Safety Report 7596012-X (Version None)
Quarter: 2011Q3

REPORT INFORMATION
  Report Type: 
  Country: None (occurrence: None)
  Receive Date: 20110707
  Receipt Date: 20110630
  Transmission Date: 20111222
  Serious: Yes (Hospitalization)
  Sender: FDA-Public Use
  Company Number: PHHO2010NZ07529

PATIENT
  Sex: Female
  Weight: 50.9 kg

DRUGS (4)
  1. SANDIMMUNE [Suspect]
     Indication: METASTATIC RENAL CELL CARCINOMA
     Dosage: 10 MG, QD
     Route: 048
     Dates: start: 20100224, end: 20100518
  2. SANDIMMUNE [Suspect]
     Dosage: 10 MG, QD
     Route: 048
     Dates: start: 20100526
  3. ANTIBIOTICS [Suspect]
  4. ZOLEDRONOC ACID [Suspect]
     Indication: METASTATIC RENAL CELL CARCINOMA
     Dosage: 3 MG, Q4WEEKLY
     Route: 042
     Dates: start: 20100224

REACTIONS (8)
  - WEIGHT DECREASED [None]
  - DYSGEUSIA [None]
  - RENAL IMPAIRMENT [None]
  - DEHYDRATION [None]
  - FATIGUE [None]
  - HYPOPHAGIA [None]
  - GLOMERULAR FILTRATION RATE DECREASED [None]
  - URINARY TRACT INFECTION BACTERIAL [None]
